FAERS Safety Report 10168634 (Version 4)
Quarter: 2019Q2

REPORT INFORMATION
  Report Type: Report from Study
  Country: US (occurrence: US)
  Receive Date: 20140513
  Receipt Date: 20190403
  Transmission Date: 20190711
  Serious: Yes (Hospitalization, Other)
  Sender: FDA-Public Use
  Company Number: US-BRISTOL-MYERS SQUIBB COMPANY-20703401

PATIENT
  Age: 33 Year
  Sex: Female
  Weight: 63.3 kg

DRUGS (1)
  1. IPILIMUMAB [Suspect]
     Active Substance: IPILIMUMAB
     Indication: MALIGNANT MELANOMA
     Dosage: IND: Q 3 WEEKS X 4 DOSES  MAINTAIN: Q12 WEEKS ON WKS24,36,48,+60  TOTAL DOSE :810 MG
     Route: 042
     Dates: start: 20140317, end: 20140407

REACTIONS (4)
  - Dehydration [Recovering/Resolving]
  - Dysphagia [Recovering/Resolving]
  - Oral pain [Unknown]
  - Stomatitis [Recovering/Resolving]

NARRATIVE: CASE EVENT DATE: 20140414
